FAERS Safety Report 17103542 (Version 1)
Quarter: 2019Q4

REPORT INFORMATION
  Report Type: Spontaneous
  Country: US (occurrence: US)
  Receive Date: 20191202
  Receipt Date: 20191202
  Transmission Date: 20200122
  Serious: Yes (Hospitalization)
  Sender: FDA-Public Use
  Company Number: None

PATIENT
  Age: 69 Year
  Sex: Female
  Weight: 61.2 kg

DRUGS (7)
  1. DABIGATRAN [Suspect]
     Active Substance: DABIGATRAN
     Indication: PULMONARY EMBOLISM
     Route: 048
  2. FERROUS SULFATE 325MG TID [Concomitant]
  3. MELATONIN 3MG NIGHTLY [Concomitant]
  4. CAPTOPRIL 12.5MG TID [Concomitant]
  5. ATORAVASTATIN 10MG DAILY [Concomitant]
  6. MIRTAZAPINE 15MG NIGHTLY [Concomitant]
  7. HYDROMORPHONE 2MG Q 4 HOURS PRN [Concomitant]

REACTIONS (2)
  - Gastrointestinal haemorrhage [None]
  - Femur fracture [None]

NARRATIVE: CASE EVENT DATE: 20150323
